FAERS Safety Report 9681469 (Version 1)
Quarter: 2013Q4

REPORT INFORMATION
  Report Type: Other
  Country: JP (occurrence: JP)
  Receive Date: 20131111
  Receipt Date: 20131111
  Transmission Date: 20140711
  Serious: Yes (Other)
  Sender: FDA-Public Use
  Company Number: JP-BRISTOL-MYERS SQUIBB COMPANY-19744572

PATIENT
  Age: 67 Year
  Sex: Female

DRUGS (1)
  1. PARAPLATIN [Suspect]
     Indication: LUNG ADENOCARCINOMA

REACTIONS (1)
  - Inappropriate antidiuretic hormone secretion [Unknown]
